FAERS Safety Report 6636549-0 (Version None)
Quarter: 2010Q1

REPORT INFORMATION
  Report Type: 
  Country: None (occurrence: None)
  Receive Date: 20100311
  Receipt Date: 20100226
  Transmission Date: 20100710
  Serious: Yes (Hospitalization)
  Sender: FDA-Public Use
  Company Number: 2010AC000038

PATIENT
  Age: 77 Year
  Sex: Female

DRUGS (29)
  1. DIGOXIN [Suspect]
     Dosage: .25 MG;QD;PO
     Route: 048
     Dates: start: 19980401, end: 19980407
  2. DIGOXIN [Suspect]
     Dosage: .125 MG;QD;PO
     Route: 048
     Dates: start: 19980407, end: 20080401
  3. DIGOXIN [Suspect]
     Dosage: GT
     Dates: start: 20080401
  4. COUMADIN [Concomitant]
  5. LISINOPRIL [Concomitant]
  6. VIOXX [Concomitant]
  7. CARDIZEN [Concomitant]
  8. HYDROCHLOROTHIAZIDE [Concomitant]
  9. TYLENOL-500 [Concomitant]
  10. EFFEXOR [Concomitant]
  11. PEPCID [Concomitant]
  12. TRENTAL [Concomitant]
  13. CELEBREX [Concomitant]
  14. ZOCOR [Concomitant]
  15. PERCOCET [Concomitant]
  16. FLOXIN [Concomitant]
  17. FUROSEMIDE [Concomitant]
  18. KLOR-CON [Concomitant]
  19. CARTIA XT [Concomitant]
  20. LACTINOL-E [Concomitant]
  21. BETAMETH/CLOTRIMAZOL [Concomitant]
  22. TACTINAL [Concomitant]
  23. VIOXX [Concomitant]
  24. LISTINOPRIL [Concomitant]
  25. CATAPRES [Concomitant]
  26. COUMADIN [Concomitant]
  27. DILTIAZEM HCL [Concomitant]
  28. HYDROCHLOROTHIAZIDE [Concomitant]
  29. . [Concomitant]

REACTIONS (17)
  - ANGINA UNSTABLE [None]
  - ANXIETY [None]
  - ATRIAL FIBRILLATION [None]
  - ATRIOVENTRICULAR BLOCK COMPLETE [None]
  - BRADYCARDIA [None]
  - CEREBROVASCULAR ACCIDENT [None]
  - CHEST PAIN [None]
  - CORONARY ARTERY DISEASE [None]
  - DYSARTHRIA [None]
  - ECONOMIC PROBLEM [None]
  - EMOTIONAL DISORDER [None]
  - HEART RATE INCREASED [None]
  - HEMIPARESIS [None]
  - INJURY [None]
  - MENTAL STATUS CHANGES [None]
  - PAIN [None]
  - URINARY TRACT INFECTION [None]
